FAERS Safety Report 20750038 (Version 1)
Quarter: 2022Q2

REPORT INFORMATION
  Report Type: Spontaneous
  Country: US (occurrence: None)
  Receive Date: 20220425
  Receipt Date: 20220425
  Transmission Date: 20220720
  Serious: Yes (Life-Threatening)
  Sender: FDA-Public Use
  Company Number: None

PATIENT
  Age: 27 Year
  Sex: Male
  Weight: 170 kg

DRUGS (2)
  1. AMOXICILLIN [Suspect]
     Active Substance: AMOXICILLIN
  2. Amoxycillin capsules [Concomitant]
     Dates: start: 19950402

REACTIONS (1)
  - Eye swelling [None]

NARRATIVE: CASE EVENT DATE: 20220425
